FAERS Safety Report 24463819 (Version 1)
Quarter: 2024Q4

REPORT INFORMATION
  Report Type: Spontaneous
  Country: US (occurrence: US)
  Receive Date: 20241018
  Receipt Date: 20241018
  Transmission Date: 20250115
  Serious: Yes (Hospitalization)
  Sender: FRESENIUS MEDICAL CARE
  Company Number: US-FMCRTG-FMC-2409-001202

PATIENT
  Age: 73 Year
  Sex: Male
  Weight: 85 kg

DRUGS (1)
  1. DELFLEX WITH DEXTROSE 1.5% LOW MAGNESIUM LOW CALCIUM [Suspect]
     Active Substance: CALCIUM CHLORIDE\DEXTROSE\MAGNESIUM CHLORIDE\SODIUM CHLORIDE\SODIUM LACTATE
     Indication: End stage renal disease
     Dosage: 2400 FOR THE FIRST FILL, 4 FILLS AT 2200 AND A LAST FILL OF 200 ML WITH NO DAYTIME EXCHANGE
     Route: 033

REACTIONS (1)
  - Peritonitis bacterial [Recovering/Resolving]
